FAERS Safety Report 15700842 (Version 1)
Quarter: 2018Q4

REPORT INFORMATION
  Report Type: Spontaneous
  Country: US (occurrence: US)
  Receive Date: 20181207
  Receipt Date: 20181207
  Transmission Date: 20190205
  Serious: No
  Sender: FDA-Public Use
  Company Number: US-SA-2018SA330973

PATIENT
  Sex: Female

DRUGS (1)
  1. GOLD BOND MEDICATED FOOT [Suspect]
     Active Substance: MENTHOL

REACTIONS (1)
  - Product administered at inappropriate site [Unknown]
